FAERS Safety Report 5721169-2 (Version None)
Quarter: 2008Q2

REPORT INFORMATION
  Report Type: 
  Country: None (occurrence: None)
  Receive Date: 20080429
  Receipt Date: 20080425
  Transmission Date: 20081010
  Serious: Yes (Hospitalization)
  Sender: FDA-Public Use
  Company Number: B0514808A

PATIENT
  Age: 37 Year
  Sex: Female

DRUGS (16)
  1. ARTIST [Suspect]
     Indication: CARDIAC FAILURE
     Dosage: 2.5MG PER DAY
     Route: 048
     Dates: start: 20050610, end: 20050627
  2. LOXONIN [Suspect]
     Dosage: 60MG PER DAY
     Route: 048
     Dates: start: 20050615, end: 20050617
  3. ACECOL [Suspect]
     Indication: CARDIAC FAILURE
     Dosage: 2MG PER DAY
     Route: 048
     Dates: start: 20050611, end: 20050624
  4. ALDACTONE [Suspect]
     Indication: CARDIAC FAILURE
     Dosage: 25MG PER DAY
     Route: 048
     Dates: start: 20050611, end: 20050621
  5. GLYSENNID [Suspect]
     Indication: CONSTIPATION
     Dosage: 12MG PER DAY
     Route: 048
     Dates: start: 20050614, end: 20050617
  6. SLOW-K [Suspect]
     Route: 048
     Dates: start: 20050614, end: 20050624
  7. MUCOSTA [Suspect]
     Indication: GASTRITIS
     Dosage: 100MG PER DAY
     Route: 048
     Dates: start: 20050615, end: 20050617
  8. PL GRANULES [Suspect]
     Dosage: 1G THREE TIMES PER DAY
     Route: 048
     Dates: start: 20050615, end: 20050617
  9. CLARITHROMYCIN [Suspect]
     Indication: UPPER RESPIRATORY TRACT INFLAMMATION
     Dosage: 200MG TWICE PER DAY
     Route: 048
     Dates: start: 20050615, end: 20050617
  10. VANCOMYCIN [Suspect]
     Dosage: .5MG TWICE PER DAY
     Route: 042
     Dates: start: 20050619
  11. GENTACIN [Suspect]
     Indication: PNEUMONIA
     Dosage: 60MG TWICE PER DAY
     Route: 042
     Dates: start: 20050617, end: 20050618
  12. AMIODARONE HCL [Suspect]
     Indication: ARRHYTHMIA
     Dosage: 100MG TWICE PER DAY
     Route: 048
     Dates: start: 20050609, end: 20050620
  13. ASPIRIN [Suspect]
     Indication: CARDIAC FAILURE
     Dosage: 100MG PER DAY
     Route: 048
     Dates: start: 20050611, end: 20050624
  14. ACINON [Suspect]
     Indication: GASTRITIS
     Dosage: 150MG PER DAY
     Route: 048
     Dates: start: 20050614, end: 20050624
  15. LASIX [Suspect]
     Indication: CARDIAC FAILURE
     Dosage: 40MG PER DAY
     Route: 048
     Dates: start: 20050611, end: 20050624
  16. TARGOCID [Concomitant]

REACTIONS (10)
  - DEPRESSION [None]
  - DERMATITIS BULLOUS [None]
  - DRY SKIN [None]
  - NECROSIS [None]
  - PIGMENTATION DISORDER [None]
  - PYREXIA [None]
  - RASH GENERALISED [None]
  - SEPSIS [None]
  - SKIN LESION [None]
  - TOXIC EPIDERMAL NECROLYSIS [None]
